FAERS Safety Report 4444890-5 (Version None)
Quarter: 2004Q3

REPORT INFORMATION
  Report Type: 
  Country: None (occurrence: None)
  Receive Date: 20040909
  Receipt Date: 20040802
  Transmission Date: 20050211
  Serious: Yes (Life-Threatening, Hospitalization)
  Sender: FDA-Public Use
  Company Number: GB-GLAXOSMITHKLINE-B0341212A

PATIENT
  Age: 54 Year
  Sex: Female

DRUGS (9)
  1. ZINACEF [Suspect]
     Indication: INFECTION PROPHYLAXIS
     Dates: start: 20040713, end: 20040719
  2. ISOFLURANE [Suspect]
     Route: 055
  3. BUPIVACAINE [Concomitant]
     Route: 008
  4. METRONIDAZOLE [Concomitant]
     Route: 065
  5. DIAMORPHINE [Concomitant]
     Route: 065
  6. ROBINUL [Concomitant]
     Route: 065
  7. NEOSTIGMINE [Concomitant]
     Route: 065
  8. ATRACURIUM BESYLATE [Concomitant]
     Route: 065
  9. PROPOFOL [Concomitant]
     Route: 065

REACTIONS (6)
  - ALANINE AMINOTRANSFERASE INCREASED [None]
  - BLOOD ALBUMIN DECREASED [None]
  - BLOOD BILIRUBIN INCREASED [None]
  - HEPATIC NECROSIS [None]
  - LIVER FUNCTION TEST ABNORMAL [None]
  - PROTHROMBIN LEVEL INCREASED [None]
